FAERS Safety Report 16296694 (Version 1)
Quarter: 2019Q2

REPORT INFORMATION
  Report Type: Spontaneous
  Country: US (occurrence: US)
  Receive Date: 20190509
  Receipt Date: 20190509
  Transmission Date: 20190711
  Serious: Yes (Other)
  Sender: FDA-Public Use
  Company Number: None

PATIENT
  Sex: Male

DRUGS (3)
  1. REPATHA [Suspect]
     Active Substance: EVOLOCUMAB
     Indication: PRODUCT USED FOR UNKNOWN INDICATION
     Dosage: ?          OTHER FREQUENCY:EVERY 2 WEEKS;?
     Route: 058
     Dates: start: 20181227
  2. LISINOPRIL. [Concomitant]
     Active Substance: LISINOPRIL
  3. PRASUGREL. [Concomitant]
     Active Substance: PRASUGREL

REACTIONS (7)
  - Erectile dysfunction [None]
  - Limb discomfort [None]
  - Hypertension [None]
  - Haematospermia [None]
  - Panic reaction [None]
  - Heart rate increased [None]
  - Hypoaesthesia [None]
